FAERS Safety Report 5479342-7 (Version None)
Quarter: 2007Q4

REPORT INFORMATION
  Report Type: 
  Country: None (occurrence: None)
  Receive Date: 20071008
  Receipt Date: 20071002
  Transmission Date: 20080405
  Serious: Yes (Hospitalization)
  Sender: FDA-Public Use
  Company Number: CA-BAYER-200715743GDS

PATIENT
  Age: 3 Year
  Sex: Male

DRUGS (1)
  1. CIPRO [Suspect]
     Indication: CHRONIC SINUSITIS
     Route: 065
     Dates: start: 20060901, end: 20070501

REACTIONS (2)
  - ARTHRALGIA [None]
  - PYREXIA [None]
